FAERS Safety Report 21480651 (Version 1)
Quarter: 2022Q4

REPORT INFORMATION
  Report Type: Spontaneous
  Country: US (occurrence: US)
  Receive Date: 20221019
  Receipt Date: 20221019
  Transmission Date: 20230113
  Serious: Yes (Other)
  Sender: FDA-Public Use
  Company Number: US-BAYER-2022A142904

PATIENT
  Age: 62 Year

DRUGS (1)
  1. STIVARGA [Suspect]
     Active Substance: REGORAFENIB
     Indication: Leiomyosarcoma
     Dosage: UNK

REACTIONS (6)
  - Haemorrhage [None]
  - Weight decreased [None]
  - Skin disorder [None]
  - Dyspnoea [None]
  - Blister [None]
  - Off label use [None]
